FAERS Safety Report 5020527-1 (Version None)
Quarter: 2006Q2

REPORT INFORMATION
  Report Type: 
  Country: None (occurrence: None)
  Receive Date: 20060606
  Receipt Date: 20060606
  Transmission Date: 20061013
  Serious: Yes (Other)
  Sender: FDA-Public Use
  Company Number: None

PATIENT
  Age: 49 Year
  Sex: Female
  Weight: 88.4514 kg

DRUGS (1)
  1. LISINOPRIL [Suspect]
     Dosage: ONE TABLET BY MOUTH ONCE A DAY
     Route: 048
     Dates: start: 20060524, end: 20060531

REACTIONS (5)
  - EAR DISCOMFORT [None]
  - FEELING HOT [None]
  - HYPOAESTHESIA [None]
  - PANIC ATTACK [None]
  - PHARMACEUTICAL PRODUCT COMPLAINT [None]
